FAERS Safety Report 4518672-X (Version None)
Quarter: 2004Q4

REPORT INFORMATION
  Report Type: 
  Country: None (occurrence: None)
  Receive Date: 20041029
  Receipt Date: 20040923
  Transmission Date: 20050328
  Serious: Yes (Other)
  Sender: FDA-Public Use
  Company Number: 200417271US

PATIENT
  Age: 63 Year
  Sex: Female

DRUGS (8)
  1. KETEK [Suspect]
     Dates: start: 20040901, end: 20040907
  2. TRICOR [Concomitant]
  3. SYNTHROID [Concomitant]
  4. NEXIUM [Concomitant]
  5. ESTROGENS CONJUGATED (PREMARIN) [Concomitant]
  6. AMBIEN [Concomitant]
  7. EFFEXOR [Concomitant]
  8. FISH OIL [Concomitant]

REACTIONS (1)
  - HEPATITIS [None]
